FAERS Safety Report 18346716 (Version 1)
Quarter: 2020Q4

REPORT INFORMATION
  Report Type: Spontaneous
  Country: US (occurrence: US)
  Receive Date: 20201005
  Receipt Date: 20201005
  Transmission Date: 20210114
  Serious: Yes (Other)
  Sender: FDA-Public Use
  Company Number: US-009507513-2009USA010510

PATIENT
  Age: 54 Year
  Sex: Male

DRUGS (2)
  1. ROCURONIUM BROMIDE. [Suspect]
     Active Substance: ROCURONIUM BROMIDE
     Indication: PARALYSIS
  2. BRIDION [Suspect]
     Active Substance: SUGAMMADEX
     Dosage: 3.4 MILLIGRAM/KILOGRAM

REACTIONS (1)
  - Anaphylactic reaction [Unknown]
